FAERS Safety Report 4690106-4 (Version None)
Quarter: 2005Q2

REPORT INFORMATION
  Report Type: 
  Country: None (occurrence: None)
  Receive Date: 20050613
  Receipt Date: 20050606
  Transmission Date: 20051028
  Serious: Yes (Hospitalization, Other)
  Sender: FDA-Public Use
  Company Number: SEWYE727608JUN05

PATIENT
  Age: 70 Year
  Sex: Female

DRUGS (1)
  1. CYCLOSPORINE [Suspect]
     Indication: IMMUNOSUPPRESSION
     Dosage: 250 MG 2X PER 1 DAY ORAL
     Route: 048
     Dates: start: 20050101

REACTIONS (3)
  - LYMPHOCELE [None]
  - URETERAL DISORDER [None]
  - URINARY TRACT OBSTRUCTION [None]
